FAERS Safety Report 6049284-7 (Version None)
Quarter: 2009Q1

REPORT INFORMATION
  Report Type: 
  Country: None (occurrence: None)
  Receive Date: 20090123
  Receipt Date: 20090119
  Transmission Date: 20090719
  Serious: Yes (Other)
  Sender: FDA-Public Use
  Company Number: DE-B.I. PHARMACEUTICALS,INC./RIDGEFIELD-2009-DE-00424DE

PATIENT
  Sex: Female
  Weight: 65 kg

DRUGS (1)
  1. AGGRENOX [Suspect]
     Dosage: 2ANZ

REACTIONS (2)
  - FALL [None]
  - SUBDURAL HAEMATOMA [None]
